FAERS Safety Report 7148571-9 (Version None)
Quarter: 2010Q4

REPORT INFORMATION
  Report Type: 
  Country: None (occurrence: None)
  Receive Date: 20101209
  Receipt Date: 20101202
  Transmission Date: 20110411
  Serious: Yes (Death, Hospitalization)
  Sender: FDA-Public Use
  Company Number: ES-BRISTOL-MYERS SQUIBB COMPANY-15421746

PATIENT
  Age: 73 Year
  Sex: Male

DRUGS (2)
  1. CISPLATIN [Suspect]
     Indication: NON-SMALL CELL LUNG CANCER STAGE III
     Dosage: LAST INFUS:28AUG10
     Route: 042
     Dates: start: 20100712
  2. PEMETREXED DISODIUM [Suspect]
     Indication: NON-SMALL CELL LUNG CANCER STAGE III
     Dosage: 12JUL-28AUG2010, 48 DAYS; 870MG, 29SEP2010-ONG.  LAST DOSE:20OCT10
     Route: 042
     Dates: start: 20100712

REACTIONS (2)
  - DEATH [None]
  - RESPIRATORY FAILURE [None]
